FAERS Safety Report 8792951 (Version 1)
Quarter: 2012Q4

REPORT INFORMATION
  Report Type: Report from Study
  Country: HU (occurrence: HU)
  Receive Date: 20120918
  Receipt Date: 20120918
  Transmission Date: 20130627
  Serious: Yes (Other)
  Sender: FDA-Public Use
  Company Number: HU-ROCHE-1122651

PATIENT
  Age: 52 Year
  Sex: Female

DRUGS (1)
  1. XELODA [Suspect]
     Indication: BREAST CANCER
     Dosage: Dose: 2X4
     Route: 065
     Dates: start: 200810, end: 200909

REACTIONS (2)
  - Tumour marker test [Unknown]
  - General physical health deterioration [Unknown]
